FAERS Safety Report 6542908-7 (Version None)
Quarter: 2010Q1

REPORT INFORMATION
  Report Type: 
  Country: None (occurrence: None)
  Receive Date: 20100120
  Receipt Date: 20100114
  Transmission Date: 20100710
  Serious: Yes (Death, Life-Threatening, Hospitalization, Other)
  Sender: FDA-Public Use
  Company Number: JP-ELI_LILLY_AND_COMPANY-JP200911002199

PATIENT
  Sex: Male
  Weight: 52.6 kg

DRUGS (10)
  1. ALIMTA [Suspect]
     Indication: LUNG SQUAMOUS CELL CARCINOMA STAGE IV
     Dosage: 770 MG, OTHER
     Route: 042
     Dates: start: 20091026, end: 20091026
  2. PANVITAN [Concomitant]
     Dosage: 1 G, DAILY (1/D)
     Route: 048
     Dates: start: 20091016, end: 20091123
  3. ZOFRAN [Concomitant]
     Indication: PROPHYLAXIS OF NAUSEA AND VOMITING
     Dosage: 4 MG, DAILY (1/D)
     Route: 048
     Dates: start: 20090820, end: 20090922
  4. DECADRON [Concomitant]
     Indication: PROPHYLAXIS OF NAUSEA AND VOMITING
     Dosage: 8 MG, DAILY (1/D)
     Route: 048
     Dates: start: 20090821, end: 20090921
  5. FERROMIA [Concomitant]
     Indication: ANAEMIA
     Dosage: 200 MG, DAILY (1/D)
     Route: 048
     Dates: start: 20090907, end: 20091015
  6. MYSLEE [Concomitant]
     Dosage: 10 MG, DAILY (1/D)
     Dates: start: 20090907, end: 20091124
  7. HYPEN [Concomitant]
     Indication: PAIN
     Dosage: 400 MG, DAILY (1/D)
     Route: 048
     Dates: start: 20091028, end: 20091124
  8. NAIXAN [Concomitant]
     Indication: TUMOUR ASSOCIATED FEVER
     Dosage: 300 MG, DAILY (1/D)
     Route: 048
     Dates: start: 20091102, end: 20091124
  9. REBAMIPIDE [Concomitant]
     Dosage: 300 MG, DAILY (1/D)
     Route: 048
     Dates: start: 20091105, end: 20091124
  10. VITAMIN B-12 [Concomitant]
     Dosage: UNK, UNKNOWN
     Route: 030

REACTIONS (6)
  - ANAEMIA [None]
  - DISSEMINATED INTRAVASCULAR COAGULATION [None]
  - LEUKOPENIA [None]
  - MALIGNANT NEOPLASM PROGRESSION [None]
  - PSEUDOMEMBRANOUS COLITIS [None]
  - SEPSIS [None]
